FAERS Safety Report 5575641-9 (Version None)
Quarter: 2007Q4

REPORT INFORMATION
  Report Type: 
  Country: None (occurrence: None)
  Receive Date: 20071130
  Receipt Date: 20070914
  Transmission Date: 20080405
  Serious: No
  Sender: FDA-Public Use
  Company Number: US200709003260

PATIENT
  Age: 63 Year
  Sex: Male
  Weight: 130.6 kg

DRUGS (2)
  1. BYETTA [Suspect]
     Indication: GLUCOSE TOLERANCE IMPAIRED
     Dosage: 5 UG, 2/D, SUBCUTANEOUS
     Route: 058
     Dates: start: 20070731
  2. ACTOS /USA/ (PIOGLITAZONE HYDROCHLORIDE) [Concomitant]

REACTIONS (3)
  - DIARRHOEA [None]
  - DRUG EFFECT DECREASED [None]
  - WEIGHT INCREASED [None]
